FAERS Safety Report 15746660 (Version 3)
Quarter: 2019Q1

REPORT INFORMATION
  Report Type: Spontaneous
  Country: US (occurrence: US)
  Receive Date: 20181220
  Receipt Date: 20190322
  Transmission Date: 20190417
  Serious: Yes (Death, Hospitalization)
  Sender: FDA-Public Use
  Company Number: US-PRINSTON PHARMACEUTICAL INC.-2018PRN01288

PATIENT
  Sex: Female

DRUGS (2)
  1. UNSPECIFIED MEDICATION FOR THE BLOOD [Concomitant]
  2. VALSARTAN. [Suspect]
     Active Substance: VALSARTAN
     Dosage: 320 MG, 1X/DAY
     Route: 048
     Dates: start: 20180703

REACTIONS (6)
  - Death [Fatal]
  - Nausea [Unknown]
  - Clostridium difficile infection [Unknown]
  - Reaction to excipient [Unknown]
  - Diarrhoea [Unknown]
  - Recalled product administered [Unknown]

NARRATIVE: CASE EVENT DATE: 201807
